FAERS Safety Report 8074692-2 (Version None)
Quarter: 2012Q1

REPORT INFORMATION
  Report Type: 
  Country: None (occurrence: None)
  Receive Date: 20120126
  Receipt Date: 20120123
  Transmission Date: 20120608
  Serious: Yes (Hospitalization)
  Sender: FDA-Public Use
  Company Number: DE-ROCHE-1033072

PATIENT
  Age: 86 Year
  Weight: 67 kg

DRUGS (1)
  1. XELODA [Suspect]
     Indication: COLORECTAL CANCER
     Dates: start: 20101115, end: 20110426

REACTIONS (4)
  - CHOLANGITIS [None]
  - METASTASES TO LIVER [None]
  - THROMBOSIS [None]
  - JAUNDICE [None]
